FAERS Safety Report 11965244 (Version 1)
Quarter: 2016Q1

REPORT INFORMATION
  Report Type: Spontaneous
  Country: US (occurrence: None)
  Receive Date: 20160122
  Receipt Date: 20160122
  Transmission Date: 20160526
  Serious: Yes (Disabling, Other)
  Sender: FDA-Public Use
  Company Number: None

PATIENT
  Age: 71 Year
  Sex: Female
  Weight: 74.84 kg

DRUGS (7)
  1. DILTIAZEM XR [Concomitant]
     Active Substance: DILTIAZEM
  2. OMEPRAZOLE. [Concomitant]
     Active Substance: OMEPRAZOLE
  3. ASPRIN [Concomitant]
     Active Substance: ASPIRIN
  4. ATORVASTATIN [Suspect]
     Active Substance: ATORVASTATIN
     Indication: BLOOD CHOLESTEROL INCREASED
     Dosage: 40 MG TABS PER DAY 1 TABLET 1 PER DAY AT NIGHT
     Route: 048
     Dates: start: 20120111, end: 201505
  5. VALSARTAN. [Concomitant]
     Active Substance: VALSARTAN
  6. COLCRY [Concomitant]
  7. TUMS [Concomitant]
     Active Substance: CALCIUM CARBONATE

REACTIONS (5)
  - Musculoskeletal stiffness [None]
  - Arthralgia [None]
  - Depression [None]
  - Depressed level of consciousness [None]
  - Myalgia [None]

NARRATIVE: CASE EVENT DATE: 20120111
